FAERS Safety Report 9357712 (Version 1)
Quarter: 2013Q2

REPORT INFORMATION
  Report Type: Spontaneous
  Country: US (occurrence: US)
  Receive Date: 20130620
  Receipt Date: 20130620
  Transmission Date: 20140414
  Serious: Yes (Hospitalization)
  Sender: FDA-Public Use
  Company Number: US-US-EMD SERONO, INC.-7039336

PATIENT
  Age: 36 Year
  Sex: Female
  Weight: 109 kg

DRUGS (2)
  1. REBIF [Suspect]
     Indication: MULTIPLE SCLEROSIS
     Route: 058
     Dates: start: 20051010
  2. UNSPECIFIED ANTIBIOTIC [Concomitant]
     Indication: PROPHYLAXIS URINARY TRACT INFECTION

REACTIONS (3)
  - Multiple sclerosis relapse [Recovered/Resolved]
  - Fall [Unknown]
  - Influenza like illness [Unknown]
